FAERS Safety Report 5939629-8 (Version None)
Quarter: 2008Q4

REPORT INFORMATION
  Report Type: 
  Country: None (occurrence: None)
  Receive Date: 20081030
  Receipt Date: 20081030
  Transmission Date: 20090506
  Serious: Yes (Hospitalization)
  Sender: FDA-Public Use
  Company Number: None

PATIENT
  Age: 62 Year
  Sex: Male
  Weight: 107.9561 kg

DRUGS (1)
  1. HUMALOG [Suspect]
     Indication: DIABETES MELLITUS
     Dosage: 50 UNITS ONCE IV
     Route: 042

REACTIONS (3)
  - BLOOD GLUCOSE INCREASED [None]
  - LOSS OF CONSCIOUSNESS [None]
  - UNRESPONSIVE TO STIMULI [None]
